FAERS Safety Report 13762474 (Version 2)
Quarter: 2017Q4

REPORT INFORMATION
  Report Type: Spontaneous
  Country: US (occurrence: US)
  Receive Date: 20170718
  Receipt Date: 20171101
  Transmission Date: 20180320
  Serious: No
  Sender: FDA-Public Use
  Company Number: US-PFIZER INC-2017309918

PATIENT
  Age: 63 Year
  Sex: Male

DRUGS (1)
  1. CHANTIX [Suspect]
     Active Substance: VARENICLINE TARTRATE
     Indication: SMOKING CESSATION THERAPY
     Dosage: UNK
     Dates: start: 20170109, end: 201703

REACTIONS (5)
  - Abnormal dreams [Unknown]
  - Insomnia [Unknown]
  - Dry mouth [Unknown]
  - Nausea [Unknown]
  - Depressed mood [Unknown]
